FAERS Safety Report 23625887 (Version 5)
Quarter: 2024Q2

REPORT INFORMATION
  Report Type: Spontaneous
  Country: US (occurrence: US)
  Receive Date: 20240313
  Receipt Date: 20240517
  Transmission Date: 20240716
  Serious: Yes (Hospitalization, Other)
  Sender: FDA-Public Use
  Company Number: US-ASTELLAS-2024US007558

PATIENT
  Sex: Male

DRUGS (18)
  1. MYRBETRIQ [Suspect]
     Active Substance: MIRABEGRON
     Indication: Hypertonic bladder
     Dosage: 0.5 DF, ONCE DAILY (ONE-HALF OF A MIRABEGRON 50 MG TABLET DAILY)
     Route: 065
     Dates: start: 20230814, end: 20231219
  2. MYRBETRIQ [Suspect]
     Active Substance: MIRABEGRON
     Route: 065
     Dates: start: 20231220, end: 20231228
  3. MYRBETRIQ [Suspect]
     Active Substance: MIRABEGRON
     Route: 048
     Dates: start: 2024, end: 20240228
  4. TAMSULOSIN [Concomitant]
     Active Substance: TAMSULOSIN
     Indication: Product used for unknown indication
     Dosage: 0.4 MG, ONCE DAILY (1/PM)
     Route: 065
  5. FINASTERIDE [Concomitant]
     Active Substance: FINASTERIDE
     Indication: Product used for unknown indication
     Route: 065
  6. SYNTHROID [Concomitant]
     Active Substance: LEVOTHYROXINE SODIUM
     Indication: Product used for unknown indication
     Route: 065
  7. LOSARTAN [Concomitant]
     Active Substance: LOSARTAN
     Indication: Hypertension
     Dosage: 100 MG, TWICE DAILY (1.2 TAB AM AND 1/2 TAB PM)
     Route: 065
  8. MELOXICAM [Concomitant]
     Active Substance: MELOXICAM
     Indication: Pain
     Dosage: UNK UNK, AS NEEDED
     Route: 065
  9. POTASSIUM [Concomitant]
     Active Substance: POTASSIUM
     Indication: Product used for unknown indication
     Dosage: 10 MEQ, TWICE DAILY (1 AT AM AND 1 AT BEDTIME)
     Route: 065
  10. SULFASALAZINE [Concomitant]
     Active Substance: SULFASALAZINE
     Indication: Product used for unknown indication
     Dosage: 500 MG, ONCE DAILY (1/AM)
     Route: 065
  11. HERBALS\TURMERIC [Concomitant]
     Active Substance: HERBALS\TURMERIC
     Indication: Product used for unknown indication
     Dosage: UNK UNK, (GEL CAPSULE) ONCE DAILY
     Route: 065
  12. VITAMIN C [Concomitant]
     Active Substance: ASCORBIC ACID
     Indication: Product used for unknown indication
     Route: 065
  13. VITAMIN D3 [Concomitant]
     Active Substance: CHOLECALCIFEROL
     Indication: Product used for unknown indication
     Route: 065
  14. MINERALS\VITAMINS [Concomitant]
     Active Substance: MINERALS\VITAMINS
     Indication: Product used for unknown indication
     Dosage: UNK UNK, ONCE DAILY
     Route: 065
  15. FISH OIL\OMEGA-3 FATTY ACIDS [Concomitant]
     Active Substance: FISH OIL\OMEGA-3 FATTY ACIDS
     Indication: Product used for unknown indication
     Route: 065
  16. AMLODIPINE [Concomitant]
     Active Substance: AMLODIPINE BESYLATE
     Indication: Hypertension
     Dosage: UNK UNK, (2.5 MG, 1/2 AT BEDTIME) ONCE DAILY
     Route: 065
  17. MELATONIN [Concomitant]
     Active Substance: MELATONIN
     Indication: Product used for unknown indication
     Dosage: 5 MG, ONCE DAILY (1/PM)
     Route: 065
  18. CETIRIZINE [Concomitant]
     Active Substance: CETIRIZINE HYDROCHLORIDE
     Indication: Product used for unknown indication
     Dosage: UNK UNK, ONCE DAILY (1/PM)
     Route: 065

REACTIONS (46)
  - Dementia [Not Recovered/Not Resolved]
  - Urinary retention [Recovered/Resolved]
  - Condition aggravated [Recovered/Resolved]
  - Headache [Recovered/Resolved]
  - Angioedema [Recovered/Resolved]
  - Headache [Recovered/Resolved]
  - Hypoaesthesia [Recovered/Resolved]
  - Dizziness [Not Recovered/Not Resolved]
  - Cognitive disorder [Not Recovered/Not Resolved]
  - Blood pressure increased [Recovered/Resolved]
  - Procedural pain [Recovered/Resolved]
  - Somnolence [Recovering/Resolving]
  - Eye irritation [Recovering/Resolving]
  - Lacrimation increased [Recovering/Resolving]
  - Cough [Recovered/Resolved]
  - Headache [Recovered/Resolved]
  - Ocular hyperaemia [Recovering/Resolving]
  - Sleep talking [Recovering/Resolving]
  - Oropharyngeal pain [Recovered/Resolved]
  - Vision blurred [Recovered/Resolved]
  - Dry eye [Recovering/Resolving]
  - Anxiety [Recovering/Resolving]
  - Aphonia [Recovering/Resolving]
  - Sneezing [Recovered/Resolved]
  - Facial pain [Recovered/Resolved]
  - Mobility decreased [Recovering/Resolving]
  - Balance disorder [Recovered/Resolved]
  - Condition aggravated [Recovered/Resolved]
  - Gait inability [Recovering/Resolving]
  - Condition aggravated [Recovering/Resolving]
  - Helplessness [Recovering/Resolving]
  - Asthenia [Recovering/Resolving]
  - Arthralgia [Not Recovered/Not Resolved]
  - Myalgia [Not Recovered/Not Resolved]
  - Periorbital pain [Recovered/Resolved]
  - Fall [Recovering/Resolving]
  - Sleep disorder [Not Recovered/Not Resolved]
  - Aphasia [Not Recovered/Not Resolved]
  - Condition aggravated [Not Recovered/Not Resolved]
  - Dysuria [Not Recovered/Not Resolved]
  - Urinary incontinence [Not Recovered/Not Resolved]
  - Urine flow decreased [Not Recovered/Not Resolved]
  - Condition aggravated [Not Recovered/Not Resolved]
  - Lymphadenopathy [Unknown]
  - Inappropriate schedule of product administration [Unknown]
  - Wrong technique in product usage process [Recovered/Resolved]

NARRATIVE: CASE EVENT DATE: 20230101
